FAERS Safety Report 4975869-2 (Version None)
Quarter: 2006Q2

REPORT INFORMATION
  Report Type: 
  Country: None (occurrence: None)
  Receive Date: 20060411
  Receipt Date: 20060324
  Transmission Date: 20061013
  Serious: Yes (Disabling, Other)
  Sender: FDA-Public Use
  Company Number: US_0503114506

PATIENT
  Age: 61 Year
  Sex: Male

DRUGS (3)
  1. CIALIS [Suspect]
     Dosage: SEE IMAGE
     Route: 048
     Dates: start: 20040204
  2. CIALIS [Suspect]
     Dosage: SEE IMAGE
     Route: 048
     Dates: start: 20040501
  3. COUMADIN [Concomitant]

REACTIONS (8)
  - ATRIAL FIBRILLATION [None]
  - CHEST PAIN [None]
  - DISEASE RECURRENCE [None]
  - GLAUCOMA [None]
  - HEADACHE [None]
  - MACULAR OEDEMA [None]
  - RETINAL HAEMORRHAGE [None]
  - RETINAL VEIN OCCLUSION [None]
